FAERS Safety Report 24213994 (Version 1)
Quarter: 2024Q3

REPORT INFORMATION
  Report Type: Spontaneous
  Country: US (occurrence: None)
  Receive Date: 20240814
  Receipt Date: 20240814
  Transmission Date: 20241016
  Serious: Yes (Hospitalization)
  Sender: Public
  Company Number: None

PATIENT
  Age: 78 Year
  Sex: Female

DRUGS (16)
  1. AMBRISENTAN [Suspect]
     Active Substance: AMBRISENTAN
     Indication: Pulmonary arterial hypertension
     Dosage: 10 MG/MG DAILY ORAL?
     Route: 048
  2. ALBUTEROL SULFATE [Concomitant]
     Active Substance: ALBUTEROL SULFATE
  3. ALLOPURINOL [Concomitant]
     Active Substance: ALLOPURINOL
  4. TORSEMIDE [Concomitant]
     Active Substance: TORSEMIDE
  5. EZETIMIBE [Concomitant]
     Active Substance: EZETIMIBE
  6. HYDROXYCHLOROQUINE [Concomitant]
     Active Substance: HYDROXYCHLOROQUINE
  7. LEVOTHYROXINE [Concomitant]
     Active Substance: LEVOTHYROXINE\LEVOTHYROXINE SODIUM
  8. LORAZEPAM [Concomitant]
     Active Substance: LORAZEPAM
  9. METOLAZONE [Concomitant]
     Active Substance: METOLAZONE
  10. METOPROLOL [Concomitant]
     Active Substance: METOPROLOL
  11. POTASSIUM CHLORIDE [Concomitant]
     Active Substance: POTASSIUM CHLORIDE
  12. SILDENAFIL [Concomitant]
     Active Substance: SILDENAFIL
  13. TYVASO [Concomitant]
     Active Substance: TREPROSTINIL
  14. WARFARIN [Concomitant]
     Active Substance: WARFARIN
  15. SILDENAFIL [Suspect]
     Active Substance: SILDENAFIL
  16. TYVASO [Suspect]
     Active Substance: TREPROSTINIL

REACTIONS (4)
  - Cardiac failure [None]
  - Hypervolaemia [None]
  - Wheezing [None]
  - Dyspnoea exertional [None]

NARRATIVE: CASE EVENT DATE: 20240711
